FAERS Safety Report 9037409 (Version 1)
Quarter: 2013Q1

REPORT INFORMATION
  Report Type: Spontaneous
  Country: US (occurrence: None)
  Receive Date: 20130115
  Receipt Date: 20130115
  Transmission Date: 20140127
  Serious: Yes (Hospitalization, Other)
  Sender: FDA-Public Use
  Company Number: 2013P1000137

PATIENT
  Age: 25 Year
  Sex: Female
  Weight: 59 kg

DRUGS (2)
  1. OXYTOCIN [Suspect]
     Dosage: 2 UNITS/HR
     Route: 042
     Dates: start: 20121220, end: 20121220
  2. LACTATED RINGERS [Suspect]
     Route: 042
     Dates: start: 20121220, end: 20121220

REACTIONS (2)
  - Caesarean section [None]
  - Uterine contractions abnormal [None]
